FAERS Safety Report 4823460-0 (Version None)
Quarter: 2005Q4

REPORT INFORMATION
  Report Type: 
  Country: None (occurrence: None)
  Receive Date: 20051107
  Receipt Date: 20051026
  Transmission Date: 20060501
  Serious: Yes (Other)
  Sender: FDA-Public Use
  Company Number: 2005147410

PATIENT
  Age: 34 Year
  Sex: Female
  Weight: 97.0698 kg

DRUGS (8)
  1. BENADRYL [Suspect]
     Indication: HYPERSENSITIVITY
     Dosage: ONE KAPSEAL DAILY, ORAL
     Route: 048
  2. MESALAMINE [Concomitant]
  3. GLYBURIDE [Concomitant]
  4. LEVOTHYROXINE SODIUM [Concomitant]
  5. BENAZEPRIL HCL [Concomitant]
  6. ATENOLOL [Concomitant]
  7. METFORMIN HCL [Concomitant]
  8. ATORVASTATIN CALCIUM [Concomitant]

REACTIONS (1)
  - HEPATIC CIRRHOSIS [None]
